FAERS Safety Report 14657033 (Version 1)
Quarter: 2018Q1

REPORT INFORMATION
  Report Type: Spontaneous
  Country: US (occurrence: US)
  Receive Date: 20180319
  Receipt Date: 20180319
  Transmission Date: 20180509
  Serious: No
  Sender: FDA-Public Use
  Company Number: US-TARO-2017TAR00386

PATIENT
  Age: 58 Year
  Sex: Male

DRUGS (1)
  1. NYSTATIN ORAL SUSPENSION USP 100,000 UNITS/ML [Suspect]
     Active Substance: NYSTATIN
     Dosage: 5 ML, 4X/DAY

REACTIONS (1)
  - Blood glucose increased [Unknown]
